FAERS Safety Report 6848687-8 (Version None)
Quarter: 2010Q3

REPORT INFORMATION
  Report Type: 
  Country: None (occurrence: None)
  Receive Date: 20100716
  Receipt Date: 20070905
  Transmission Date: 20110219
  Serious: No
  Sender: FDA-Public Use
  Company Number: US-PFIZER INC-2007075238

PATIENT
  Sex: Female
  Weight: 70.5 kg

DRUGS (8)
  1. CHANTIX [Suspect]
     Indication: SMOKING CESSATION THERAPY
     Dates: start: 20070901
  2. METHADONE HCL [Concomitant]
  3. OXYCODONE HCL [Concomitant]
  4. SENNA [Concomitant]
  5. FLUOXETINE HCL [Concomitant]
  6. PREMPRO [Concomitant]
  7. ATENOLOL [Concomitant]
  8. VITAMINS [Concomitant]

REACTIONS (9)
  - BURNING SENSATION [None]
  - CONSTIPATION [None]
  - DYSGEUSIA [None]
  - FEELING ABNORMAL [None]
  - FEELING OF BODY TEMPERATURE CHANGE [None]
  - HEADACHE [None]
  - INSOMNIA [None]
  - NERVOUSNESS [None]
  - PARAESTHESIA [None]
